FAERS Safety Report 11212785 (Version 1)
Quarter: 2015Q2

REPORT INFORMATION
  Report Type: Spontaneous
  Country: US (occurrence: None)
  Receive Date: 20150622
  Receipt Date: 20150622
  Transmission Date: 20150821
  Serious: No
  Sender: FDA-Public Use
  Company Number: None

PATIENT
  Age: 46 Year
  Sex: Female
  Weight: 58.97 kg

DRUGS (4)
  1. ESCITALOPRAM 10MG [Suspect]
     Active Substance: ESCITALOPRAM OXALATE
     Indication: ANXIETY
     Dosage: HALF A PILL (5MG) ONCE DAILY TAKEN BY MOUTH
     Route: 048
     Dates: start: 20150605, end: 20150605
  2. BISOPROLOL [Concomitant]
     Active Substance: BISOPROLOL
  3. VITAMIN B COMPLEX [Concomitant]
     Active Substance: CYANOCOBALAMIN\DEXPANTHENOL\NIACINAMIDE\PYRIDOXINE HYDROCHLORIDE\RIBOFLAVIN 5^-PHOSPHATE SODIUM\THIAMINE HYDROCHLORIDE\VITAMIN B COMPLEX
  4. ESCITALOPRAM 10MG [Suspect]
     Active Substance: ESCITALOPRAM OXALATE
     Indication: INSOMNIA
     Dosage: HALF A PILL (5MG) ONCE DAILY TAKEN BY MOUTH
     Route: 048
     Dates: start: 20150605, end: 20150605

REACTIONS (11)
  - Diarrhoea [None]
  - Musculoskeletal stiffness [None]
  - Toxicity to various agents [None]
  - Mydriasis [None]
  - Muscle spasms [None]
  - Anxiety [None]
  - Malaise [None]
  - Tremor [None]
  - Incorrect dose administered [None]
  - Bruxism [None]
  - Nausea [None]

NARRATIVE: CASE EVENT DATE: 20150605
